FAERS Safety Report 7979862-7 (Version None)
Quarter: 2011Q4

REPORT INFORMATION
  Report Type: 
  Country: None (occurrence: None)
  Receive Date: 20111214
  Receipt Date: 20111205
  Transmission Date: 20120403
  Serious: Yes (Hospitalization)
  Sender: FDA-Public Use
  Company Number: US-JNJFOC-20111202408

PATIENT
  Sex: Male
  Weight: 75.75 kg

DRUGS (2)
  1. REMICADE [Suspect]
     Indication: ANKYLOSING SPONDYLITIS
     Route: 042
     Dates: start: 20060101
  2. LOTREL [Concomitant]
     Indication: HYPERTENSION
     Dates: start: 20060101

REACTIONS (6)
  - JOINT SWELLING [None]
  - HAEMATOCHEZIA [None]
  - COLITIS [None]
  - DIZZINESS [None]
  - OEDEMA PERIPHERAL [None]
  - SWELLING [None]
